FAERS Safety Report 7643750 (Version 3)
Quarter: 2013Q4

REPORT INFORMATION
  Report Type: Report from Study
  Country: US (occurrence: US)
  Receive Date: 20101027
  Receipt Date: 20131021
  Transmission Date: 20140711
  Serious: Yes (Other)
  Sender: FDA-Public Use
  Company Number: US-PFIZER INC-US-WYE-H16689010

PATIENT
  Age: 51 Year
  Sex: Female
  Weight: 64.4 kg

DRUGS (2)
  1. PREMPRO [Suspect]
     Indication: MENOPAUSAL SYMPTOMS
     Dosage: 0.625/2.5 MG 1X/DAY
     Route: 048
     Dates: start: 2008
  2. EFFEXOR [Suspect]
     Indication: POST-TRAUMATIC STRESS DISORDER
     Dosage: 150 MG, 2X/DAY
     Route: 048
     Dates: start: 2000

REACTIONS (3)
  - Rectosigmoid cancer [Unknown]
  - Haemorrhage [Recovering/Resolving]
  - Spinal fracture [Unknown]
